FAERS Safety Report 12694880 (Version 2)
Quarter: 2016Q3

REPORT INFORMATION
  Report Type: Report from Study
  Country: US (occurrence: US)
  Receive Date: 20160829
  Receipt Date: 20160901
  Transmission Date: 20161109
  Serious: Yes (Hospitalization, Other)
  Sender: FDA-Public Use
  Company Number: US-JNJFOC-20160820374

PATIENT
  Age: 77 Year
  Sex: Female

DRUGS (6)
  1. IMBRUVICA [Suspect]
     Active Substance: IBRUTINIB
     Indication: CHRONIC LYMPHOCYTIC LEUKAEMIA
     Route: 048
     Dates: start: 20150916
  2. NPLATE [Concomitant]
     Active Substance: ROMIPLOSTIM
  3. PREDNISONE. [Concomitant]
     Active Substance: PREDNISONE
  4. BIOTIN [Concomitant]
     Active Substance: BIOTIN
  5. PRAVACHOL [Concomitant]
     Active Substance: PRAVASTATIN SODIUM
  6. CALCIUM + D DUETTO [Concomitant]

REACTIONS (3)
  - Hip fracture [Not Recovered/Not Resolved]
  - Neutrophil count decreased [Not Recovered/Not Resolved]
  - Fall [Not Recovered/Not Resolved]

NARRATIVE: CASE EVENT DATE: 20160816
